FAERS Safety Report 22192626 (Version 4)
Quarter: 2023Q2

REPORT INFORMATION
  Report Type: Spontaneous
  Country: JP (occurrence: JP)
  Receive Date: 20230410
  Receipt Date: 20230623
  Transmission Date: 20230721
  Serious: Yes (Life-Threatening, Other)
  Sender: FDA-Public Use
  Company Number: None

PATIENT
  Age: 66 Year
  Sex: Male

DRUGS (7)
  1. BOTOX [Suspect]
     Active Substance: ONABOTULINUMTOXINA
     Indication: Joint contracture
     Dosage: TIME INTERVAL: AS NECESSARY: 300 IU
     Route: 030
     Dates: start: 20230221, end: 20230221
  2. COMIRNATY [Suspect]
     Active Substance: TOZINAMERAN
     Indication: Prophylaxis
     Dosage: TIME INTERVAL: AS NECESSARY: DOSE DESC: UNK, SINGLE
     Route: 030
     Dates: start: 20230227, end: 20230227
  3. SODIUM PICOSULFATE [Concomitant]
     Active Substance: SODIUM PICOSULFATE
     Indication: Product used for unknown indication
     Dosage: 5 MG
     Route: 048
  4. TSUMURA RIKKUNSHITOU [Concomitant]
     Indication: Product used for unknown indication
     Dosage: 3 DF
     Route: 048
  5. ACOTIAMIDE HYDROCHLORIDE [Concomitant]
     Active Substance: ACOTIAMIDE HYDROCHLORIDE
     Indication: Product used for unknown indication
     Dosage: 3 DF
     Route: 048
  6. HERBALS [Concomitant]
     Active Substance: HERBALS
     Indication: Product used for unknown indication
     Route: 048
  7. SILECE Tablet [Concomitant]
     Indication: Product used for unknown indication
     Route: 048

REACTIONS (4)
  - Cardiac failure acute [Not Recovered/Not Resolved]
  - Cardiac failure congestive [Not Recovered/Not Resolved]
  - Pulmonary congestion [Not Recovered/Not Resolved]
  - Cardiovascular insufficiency [Not Recovered/Not Resolved]

NARRATIVE: CASE EVENT DATE: 20230306
